FAERS Safety Report 6558084-0 (Version None)
Quarter: 2010Q1

REPORT INFORMATION
  Report Type: 
  Country: None (occurrence: None)
  Receive Date: 20100129
  Receipt Date: 20100127
  Transmission Date: 20100710
  Serious: Yes (Hospitalization)
  Sender: FDA-Public Use
  Company Number: A0777811A

PATIENT
  Sex: Female
  Weight: 64.9 kg

DRUGS (3)
  1. LAPATINIB [Suspect]
     Dosage: 1500MG PER DAY
     Route: 050
     Dates: start: 20090227
  2. CISPLATIN [Suspect]
     Dosage: 100MGM2 CYCLIC
     Route: 042
     Dates: start: 20090303
  3. RADIOTHERAPY [Suspect]
     Dosage: 8GY VARIABLE DOSE
     Route: 061
     Dates: start: 20090303, end: 20090306

REACTIONS (2)
  - NON-CARDIAC CHEST PAIN [None]
  - PALPITATIONS [None]
